FAERS Safety Report 23651580 (Version 1)
Quarter: 2024Q1

REPORT INFORMATION
  Report Type: Spontaneous
  Country: US (occurrence: US)
  Receive Date: 20240320
  Receipt Date: 20240320
  Transmission Date: 20240410
  Serious: Yes (Hospitalization)
  Sender: FDA-Public Use
  Company Number: US-AMAROX PHARMA-ASP2024US00770

PATIENT
  Age: 50 Year
  Sex: Female
  Weight: 38.9 kg

DRUGS (3)
  1. LACOSAMIDE [Suspect]
     Active Substance: LACOSAMIDE
     Indication: Seizure prophylaxis
     Dosage: 200 MILLIGRAM, BID (ADMINISTERED VIA PERCUTANEOUS ENDOSCOPIC GASTROSTOMY)
  2. LACOSAMIDE [Suspect]
     Active Substance: LACOSAMIDE
     Dosage: 300 MILLIGRAM, BID
     Route: 065
  3. LEVETIRACETAM [Concomitant]
     Active Substance: LEVETIRACETAM
     Indication: Seizure prophylaxis
     Dosage: 1500 MILLIGRAM, BID (ADMINISTERED VIA PERCUTANEOUS ENDOSCOPIC GASTROSTOMY)

REACTIONS (6)
  - Toxicity to various agents [Recovering/Resolving]
  - Head injury [Unknown]
  - Seizure [Recovering/Resolving]
  - Condition aggravated [Recovering/Resolving]
  - Fall [Unknown]
  - Product use issue [Unknown]
